FAERS Safety Report 14930481 (Version 3)
Quarter: 2018Q2

REPORT INFORMATION
  Report Type: Report from Study
  Country: RU (occurrence: RU)
  Receive Date: 20180523
  Receipt Date: 20180629
  Transmission Date: 20180711
  Serious: Yes (Death)
  Sender: FDA-Public Use
  Company Number: PHHY2017RU179937

PATIENT
  Age: 29 Year
  Sex: Female

DRUGS (7)
  1. TAFINLAR [Suspect]
     Active Substance: DABRAFENIB MESYLATE
     Dosage: UNK
     Route: 065
  2. MEKINIST [Suspect]
     Active Substance: TRAMETINIB DIMETHYL SULFOXIDE
     Indication: METASTASES TO CENTRAL NERVOUS SYSTEM
     Dosage: 2 MG, QD
     Route: 048
     Dates: start: 20171025, end: 20171031
  3. TAFINLAR [Suspect]
     Active Substance: DABRAFENIB MESYLATE
     Indication: METASTASES TO CENTRAL NERVOUS SYSTEM
     Dosage: 150 MG, BID
     Route: 048
     Dates: start: 20171025, end: 20171031
  4. MEKINIST [Suspect]
     Active Substance: TRAMETINIB DIMETHYL SULFOXIDE
     Dosage: UNK
     Route: 065
  5. CARBAMAZEPINE. [Suspect]
     Active Substance: CARBAMAZEPINE
     Indication: PRODUCT USED FOR UNKNOWN INDICATION
     Route: 065
  6. MEKINIST [Suspect]
     Active Substance: TRAMETINIB DIMETHYL SULFOXIDE
     Indication: MALIGNANT MELANOMA
     Dosage: 1 DF, QD
     Route: 048
     Dates: start: 20170929, end: 20171004
  7. TAFINLAR [Suspect]
     Active Substance: DABRAFENIB MESYLATE
     Indication: MALIGNANT MELANOMA
     Dosage: 150 MG, BID
     Route: 048
     Dates: start: 20170929, end: 20171004

REACTIONS (25)
  - Monocyte count increased [Unknown]
  - Haemoglobin decreased [Unknown]
  - Malaise [Unknown]
  - Malignant neoplasm progression [Fatal]
  - Red blood cell sedimentation rate increased [Unknown]
  - Chest pain [Unknown]
  - Blood uric acid decreased [Unknown]
  - Movement disorder [Unknown]
  - Neutrophil count increased [Unknown]
  - Blood alkaline phosphatase increased [Unknown]
  - Headache [Unknown]
  - Rash macular [Unknown]
  - Red blood cell count decreased [Unknown]
  - Rash [Unknown]
  - Dyspnoea exertional [Unknown]
  - Eosinophil count decreased [Unknown]
  - Mean cell haemoglobin decreased [Unknown]
  - Asthenia [Unknown]
  - Product use in unapproved indication [Unknown]
  - Malignant melanoma [Fatal]
  - Haematocrit decreased [Unknown]
  - Pyrexia [Unknown]
  - Mean cell volume decreased [Unknown]
  - Blood glucose increased [Unknown]
  - Lymphocyte count decreased [Unknown]

NARRATIVE: CASE EVENT DATE: 20171024
